FAERS Safety Report 9378080 (Version 1)
Quarter: 2013Q3

REPORT INFORMATION
  Report Type: Report from Study
  Country: US (occurrence: US)
  Receive Date: 20130701
  Receipt Date: 20130701
  Transmission Date: 20140515
  Serious: Yes (Life-Threatening, Hospitalization)
  Sender: FDA-Public Use
  Company Number: US-GLAXOSMITHKLINE-A1028904A

PATIENT
  Age: 9 Year
  Sex: Male
  Weight: 30 kg

DRUGS (11)
  1. NELARABINE [Suspect]
     Indication: NON-HODGKIN^S LYMPHOMA
     Dosage: 650MGM2 CYCLIC
     Route: 042
  2. MERCAPTOPURINE [Suspect]
     Indication: NON-HODGKIN^S LYMPHOMA
  3. VINCRISTINE [Suspect]
     Indication: NON-HODGKIN^S LYMPHOMA
     Dosage: 1.5MGM2 CYCLIC
     Route: 042
  4. DEXAMETHASONE [Suspect]
     Indication: NON-HODGKIN^S LYMPHOMA
     Dosage: 5MGM2 CYCLIC
     Route: 048
  5. DOXORUBICIN [Suspect]
     Indication: NON-HODGKIN^S LYMPHOMA
     Dosage: 25MGM2 CYCLIC
     Route: 042
  6. PEGASPARGASE [Suspect]
     Indication: NON-HODGKIN^S LYMPHOMA
     Route: 030
  7. METHOTREXATE [Suspect]
     Indication: NON-HODGKIN^S LYMPHOMA
     Route: 037
  8. CYCLOPHOSPHAMIDE [Suspect]
     Indication: NON-HODGKIN^S LYMPHOMA
     Dosage: 1000MGM2 CYCLIC
     Route: 042
  9. CYTARABINE [Suspect]
     Indication: NON-HODGKIN^S LYMPHOMA
     Dosage: 75MGM2 CYCLIC
  10. THIOGUANINE [Suspect]
     Indication: NON-HODGKIN^S LYMPHOMA
     Dosage: 60MGM2 CYCLIC
     Route: 048
  11. RADIATION [Concomitant]
     Indication: NON-HODGKIN^S LYMPHOMA

REACTIONS (2)
  - Convulsion [Recovering/Resolving]
  - Cerebrovascular accident [Recovering/Resolving]
